FAERS Safety Report 18252300 (Version 1)
Quarter: 2020Q3

REPORT INFORMATION
  Report Type: Spontaneous
  Country: US (occurrence: US)
  Receive Date: 20200909
  Receipt Date: 20200909
  Transmission Date: 20201103
  Serious: Yes (Hospitalization)
  Sender: FDA-Public Use
  Company Number: None

PATIENT
  Age: 62 Year
  Sex: Female

DRUGS (1)
  1. SPRYCEL [Suspect]
     Active Substance: DASATINIB
     Indication: TONGUE NEOPLASM MALIGNANT STAGE UNSPECIFIED
     Route: 048
     Dates: start: 201710, end: 20200908

REACTIONS (1)
  - Fluid retention [None]

NARRATIVE: CASE EVENT DATE: 20200728
